FAERS Safety Report 12061636 (Version 1)
Quarter: 2016Q1

REPORT INFORMATION
  Report Type: Spontaneous
  Country: US (occurrence: US)
  Receive Date: 20160210
  Receipt Date: 20160210
  Transmission Date: 20160526
  Serious: No
  Sender: FDA-Public Use
  Company Number: US-ALLERGAN-1504165US

PATIENT
  Sex: Female

DRUGS (2)
  1. BOTOX [Suspect]
     Active Substance: ONABOTULINUMTOXINA
     Indication: LARYNGOSPASM
     Dosage: 0.75 UNITS, SINGLE
     Route: 030
     Dates: start: 20150126, end: 20150126
  2. BOTOX [Suspect]
     Active Substance: ONABOTULINUMTOXINA
     Dosage: 0.5 UNITS, SINGLE
     Route: 030
     Dates: start: 20150126, end: 20150126

REACTIONS (2)
  - Off label use [Unknown]
  - Drug ineffective [Unknown]
